FAERS Safety Report 6224336-7 (Version None)
Quarter: 2009Q2

REPORT INFORMATION
  Report Type: 
  Country: None (occurrence: None)
  Receive Date: 20090612
  Receipt Date: 20090317
  Transmission Date: 20091009
  Serious: Yes (Other)
  Sender: FDA-Public Use
  Company Number: US-ABBOTT-09P-163-0562957-00

PATIENT
  Sex: Female
  Weight: 74.002 kg

DRUGS (11)
  1. HUMIRA [Suspect]
     Indication: RHEUMATOID ARTHRITIS
     Route: 058
     Dates: start: 20090101
  2. METHOTREXATE [Concomitant]
     Indication: RHEUMATOID ARTHRITIS
     Route: 048
     Dates: start: 20050101
  3. CALCIUM+VIT D [Concomitant]
     Indication: MINERAL SUPPLEMENTATION
  4. VITAMIN D [Concomitant]
     Indication: VITAMIN SUPPLEMENTATION
  5. PRAVASTATIN [Concomitant]
     Indication: BLOOD CHOLESTEROL INCREASED
     Route: 048
  6. OMEPRAZOLE [Concomitant]
     Indication: GASTROOESOPHAGEAL REFLUX DISEASE
     Route: 048
  7. FLEXERIL [Concomitant]
     Indication: RHEUMATOID ARTHRITIS
     Dosage: 1/2 - 10 MG TABLET AT BEDTIME
     Route: 048
  8. WELLBUTRIN [Concomitant]
     Indication: EX-TOBACCO USER
     Route: 048
  9. FOLIC ACID [Concomitant]
     Indication: VITAMIN SUPPLEMENTATION
     Route: 048
  10. DARVOCET-N 100 [Concomitant]
     Indication: RHEUMATOID ARTHRITIS
     Route: 048
  11. PERCOCET [Concomitant]
     Indication: RHEUMATOID ARTHRITIS
     Dosage: 5/325
     Route: 048

REACTIONS (2)
  - CATARACT [None]
  - EYE SWELLING [None]
